FAERS Safety Report 9862949 (Version 2)
Quarter: 2014Q1

REPORT INFORMATION
  Report Type: Spontaneous
  Country: IE (occurrence: IE)
  Receive Date: 20140203
  Receipt Date: 20140203
  Transmission Date: 20141002
  Serious: Yes (Other)
  Sender: FDA-Public Use
  Company Number: PHHY2014IE004972

PATIENT
  Age: 22 Year
  Sex: Female
  Weight: 50.8 kg

DRUGS (9)
  1. TOBI [Suspect]
     Dates: end: 201312
  2. TOBI [Suspect]
  3. TOBI PODHALER [Suspect]
     Indication: PSEUDOMONAS INFECTION
     Dosage: 1 DF, BID
     Route: 055
     Dates: start: 20131204, end: 20131217
  4. AZITHROMYCIN [Concomitant]
     Indication: CYSTIC FIBROSIS
     Dosage: UNK UKN, UNK
     Route: 048
  5. EFEXOR [Concomitant]
     Indication: CYSTIC FIBROSIS
     Dosage: DAILY
     Route: 048
  6. VIT D [Concomitant]
     Dosage: DAILY
     Route: 048
  7. COMBIVENT [Concomitant]
     Dosage: UNK UKN, UNK
  8. PULMOZYME [Concomitant]
     Dosage: UNK UKN, UNK
  9. COLOMYCIN [Concomitant]
     Dosage: UNK UKN, UNK
     Route: 055

REACTIONS (1)
  - Chest discomfort [Recovered/Resolved]
